FAERS Safety Report 15370956 (Version 2)
Quarter: 2018Q4

REPORT INFORMATION
  Report Type: Spontaneous
  Country: US (occurrence: US)
  Receive Date: 20180911
  Receipt Date: 20181008
  Transmission Date: 20190204
  Serious: No
  Sender: FDA-Public Use
  Company Number: US-SA-2018SA251714

PATIENT
  Age: 51 Year
  Sex: Female

DRUGS (1)
  1. APIDRA [Suspect]
     Active Substance: INSULIN GLULISINE
     Indication: TYPE 2 DIABETES MELLITUS
     Dosage: 8-10 UNITS, 1-3 TIMES PER DAY
     Route: 065

REACTIONS (2)
  - Drug ineffective [Unknown]
  - Product odour abnormal [Unknown]
